FAERS Safety Report 6463383-7 (Version None)
Quarter: 2009Q4

REPORT INFORMATION
  Report Type: 
  Country: None (occurrence: None)
  Receive Date: 20091201
  Receipt Date: 20090831
  Transmission Date: 20100525
  Serious: Yes (Other)
  Sender: FDA-Public Use
  Company Number: US-AMGEN-QUU361477

PATIENT
  Sex: Female

DRUGS (1)
  1. ENBREL [Suspect]
     Indication: ANKYLOSING SPONDYLITIS
     Route: 058
     Dates: start: 20090813

REACTIONS (6)
  - ANXIETY [None]
  - BURNING SENSATION [None]
  - BUTTERFLY RASH [None]
  - DEPRESSION [None]
  - MUSCULOSKELETAL STIFFNESS [None]
  - RASH [None]
